FAERS Safety Report 19226256 (Version 2)
Quarter: 2021Q3

REPORT INFORMATION
  Report Type: Report from Study
  Country: US (occurrence: US)
  Receive Date: 20210506
  Receipt Date: 20210806
  Transmission Date: 20211014
  Serious: No
  Sender: FDA-Public Use
  Company Number: US-AURINIA PHARMACEUTICALS INC.-AUR-000017

PATIENT
  Age: 45 Year
  Sex: Female

DRUGS (2)
  1. LUPKYNIS [Suspect]
     Active Substance: VOCLOSPORIN
     Indication: LUPUS NEPHRITIS
     Dosage: PRESCRIBED DOSE IS 15.8 BID, PT WAS ONLY TAKING ONCE DAILY
     Route: 065
     Dates: start: 20210312
  2. LUPKYNIS [Suspect]
     Active Substance: VOCLOSPORIN
     Dosage: 15.8 MILLIGRAM, BID
     Route: 048
     Dates: start: 20210314

REACTIONS (5)
  - Incorrect dose administered [Unknown]
  - Bone pain [Unknown]
  - Abdominal discomfort [Unknown]
  - Depressed mood [Unknown]
  - Abdominal pain upper [Not Recovered/Not Resolved]

NARRATIVE: CASE EVENT DATE: 20210314
